FAERS Safety Report 23883605 (Version 1)
Quarter: 2024Q2

REPORT INFORMATION
  Report Type: Spontaneous
  Country: TW (occurrence: TW)
  Receive Date: 20240522
  Receipt Date: 20240522
  Transmission Date: 20240716
  Serious: Yes (Other)
  Sender: FDA-Public Use
  Company Number: TW-ASTELLAS-2024US014449

PATIENT
  Age: 86 Year
  Sex: Female

DRUGS (4)
  1. PADCEV [Suspect]
     Active Substance: ENFORTUMAB VEDOTIN-EJFV
     Indication: Transitional cell cancer of renal pelvis and ureter metastatic
     Dosage: UNK UNK, EVERY 3 WEEKS
     Route: 065
  2. PADCEV [Suspect]
     Active Substance: ENFORTUMAB VEDOTIN-EJFV
     Dosage: UNK UNK, RECHALLENGE ENFORTUMAB VEDOTIN AND PEMBROLIZUMAB EVERY 4-5WEEKS FOR 8 MONTHS
     Route: 065
  3. PEMBROLIZUMAB [Concomitant]
     Active Substance: PEMBROLIZUMAB
     Indication: Transitional cell cancer of renal pelvis and ureter metastatic
     Dosage: UNK UNK, EVERY 3 WEEKS
     Route: 065
  4. PEMBROLIZUMAB [Concomitant]
     Active Substance: PEMBROLIZUMAB
     Dosage: UNK UNK, RECHALLENGE ENFORTUMAB VEDOTIN AND PEMBROLIZUMAB EVERY 4-5WEEKS FOR 8 MONTHS
     Route: 065

REACTIONS (4)
  - Bladder dysplasia [Unknown]
  - Off label use [Unknown]
  - Product use issue [Unknown]
  - Off label use [Unknown]
